FAERS Safety Report 25193384 (Version 1)
Quarter: 2025Q2

REPORT INFORMATION
  Report Type: Spontaneous
  Country: CA (occurrence: CA)
  Receive Date: 20250414
  Receipt Date: 20250414
  Transmission Date: 20250716
  Serious: Yes (Death, Hospitalization)
  Sender: MYLAN
  Company Number: CA-MYLANLABS-2025M1031927

PATIENT
  Age: 71 Year
  Sex: Female
  Weight: 57.15 kg

DRUGS (14)
  1. CELEBREX [Suspect]
     Active Substance: CELECOXIB
     Indication: Procedural pain
     Dosage: 100 MILLIGRAM, BID (2 EVERY 1 DAY)
  2. PREDNISONE [Suspect]
     Active Substance: PREDNISONE
     Indication: Chronic obstructive pulmonary disease
     Dosage: 50 MILLIGRAM, QD (1 EVERY 1 DAY)
  3. ATORVASTATIN [Concomitant]
     Active Substance: ATORVASTATIN
  4. AMLODIPINE [Concomitant]
     Active Substance: AMLODIPINE BESYLATE
  5. AVELOX [Concomitant]
     Active Substance: MOXIFLOXACIN HYDROCHLORIDE
  6. HYDROMORPHONE [Concomitant]
     Active Substance: HYDROMORPHONE
  7. LORAZEPAM [Concomitant]
     Active Substance: LORAZEPAM
  8. PREGABALIN [Concomitant]
     Active Substance: PREGABALIN
  9. PROPRANOLOL [Concomitant]
     Active Substance: PROPRANOLOL HYDROCHLORIDE
  10. ALBUTEROL [Concomitant]
     Active Substance: ALBUTEROL
  11. SYMBICORT [Concomitant]
     Active Substance: BUDESONIDE\FORMOTEROL FUMARATE DIHYDRATE
  12. THIAMINE [Concomitant]
     Active Substance: THIAMINE
  13. TIOTROPIUM BROMIDE [Concomitant]
     Active Substance: TIOTROPIUM BROMIDE
  14. VENLAFAXINE HYDROCHLORIDE [Concomitant]
     Active Substance: VENLAFAXINE HYDROCHLORIDE

REACTIONS (2)
  - Haemodynamic instability [Fatal]
  - Haemoglobin decreased [Fatal]
